FAERS Safety Report 5713307-2 (Version None)
Quarter: 2008Q2

REPORT INFORMATION
  Report Type: 
  Country: None (occurrence: None)
  Receive Date: 20080418
  Receipt Date: 20080407
  Transmission Date: 20081010
  Serious: Yes (Hospitalization)
  Sender: FDA-Public Use
  Company Number: 20085013

PATIENT
  Sex: Male
  Weight: 35 kg

DRUGS (1)
  1. LIORESAL [Suspect]
     Indication: MUSCLE SPASTICITY
     Dosage: 500 MCG, DAILY, INTRATHECAL
     Route: 037

REACTIONS (7)
  - BLOOD PRESSURE INCREASED [None]
  - DEVICE BREAKAGE [None]
  - EXTRAVASATION [None]
  - HYPERHIDROSIS [None]
  - MUSCLE CONTRACTURE [None]
  - TACHYCARDIA [None]
  - WITHDRAWAL SYNDROME [None]
